FAERS Safety Report 24162461 (Version 1)
Quarter: 2024Q3

REPORT INFORMATION
  Report Type: Spontaneous
  Country: GB (occurrence: GB)
  Receive Date: 20240801
  Receipt Date: 20240801
  Transmission Date: 20241017
  Serious: Yes (Other)
  Sender: MYLAN
  Company Number: None

PATIENT
  Age: 19 Year
  Sex: Female
  Weight: 63 kg

DRUGS (1)
  1. SERTRALINE [Suspect]
     Active Substance: SERTRALINE HYDROCHLORIDE
     Indication: Mental disorder
     Dosage: 50 MILLIGRAM
     Route: 065
     Dates: start: 202311

REACTIONS (1)
  - Tic [Recovered/Resolved with Sequelae]

NARRATIVE: CASE EVENT DATE: 20231101
